FAERS Safety Report 22262398 (Version 1)
Quarter: 2023Q2

REPORT INFORMATION
  Report Type: Report from Study
  Country: US (occurrence: US)
  Receive Date: 20230428
  Receipt Date: 20230428
  Transmission Date: 20230721
  Serious: Yes (Hospitalization, Other)
  Sender: FDA-Public Use
  Company Number: US-ABBVIE-4739102

PATIENT
  Age: 57 Year
  Sex: Male

DRUGS (1)
  1. HUMIRA [Suspect]
     Active Substance: ADALIMUMAB
     Indication: Crohn^s disease
     Dosage: FORM STRENGTH: 40 MG
     Route: 058
     Dates: start: 20220801

REACTIONS (3)
  - Splenic thrombosis [Recovered/Resolved]
  - Crohn^s disease [Recovered/Resolved]
  - Bacterial test positive [Unknown]

NARRATIVE: CASE EVENT DATE: 20230318
